FAERS Safety Report 10657757 (Version 2)
Quarter: 2014Q4

REPORT INFORMATION
  Report Type: Spontaneous
  Country: US (occurrence: US)
  Receive Date: 20141217
  Receipt Date: 20141217
  Transmission Date: 20150529
  Serious: No
  Sender: FDA-Public Use
  Company Number: US-GLAXOSMITHKLINE-A1053258A

PATIENT

DRUGS (1)
  1. VOTRIENT [Suspect]
     Active Substance: PAZOPANIB HYDROCHLORIDE
     Indication: OSTEOSARCOMA METASTATIC
     Dosage: 200 MG TABLETS, 800MG PER DAY
     Route: 048
     Dates: start: 20131121, end: 20140415

REACTIONS (7)
  - Myalgia [Recovering/Resolving]
  - Decreased appetite [Recovering/Resolving]
  - Gastric disorder [Recovering/Resolving]
  - Bone pain [Recovering/Resolving]
  - Disease progression [Unknown]
  - Dysgeusia [Recovering/Resolving]
  - Alopecia [Recovering/Resolving]

NARRATIVE: CASE EVENT DATE: 201311
